FAERS Safety Report 25981248 (Version 1)
Quarter: 2025Q4

REPORT INFORMATION
  Report Type: Spontaneous
  Country: US (occurrence: US)
  Receive Date: 20251030
  Receipt Date: 20251030
  Transmission Date: 20260118
  Serious: No
  Sender: PFIZER
  Company Number: US-PFIZER INC-PV202500127470

PATIENT
  Age: 51 Year
  Sex: Female
  Weight: 97.52 kg

DRUGS (13)
  1. PRISTIQ EXTENDED-RELEASE [Suspect]
     Active Substance: DESVENLAFAXINE SUCCINATE
     Indication: Anxiety
     Dosage: 200 MG, 1X/DAY (100MG PER TABLET, 2 TABLETS IN MORNING, BY MOUTH)
     Route: 048
  2. PRISTIQ EXTENDED-RELEASE [Suspect]
     Active Substance: DESVENLAFAXINE SUCCINATE
     Indication: Depression
  3. TOPAMAX [Concomitant]
     Active Substance: TOPIRAMATE
     Dosage: 100 MG, 1X/DAY
     Route: 048
  4. HYDROCHLOROTHIAZIDE [Concomitant]
     Active Substance: HYDROCHLOROTHIAZIDE
     Indication: Hypertension
     Dosage: UNK UNK, 1X/DAY
     Route: 048
  5. SYNTHROID [Concomitant]
     Active Substance: LEVOTHYROXINE SODIUM
     Indication: Thyroid therapy
     Dosage: 50 UG, 1X/DAY (IN MORNING ON EMPTY STOMACH)
     Route: 048
  6. AMITIZA [Concomitant]
     Active Substance: LUBIPROSTONE
     Indication: Constipation
     Dosage: 24 UG, 2X/DAY (WITH FOOD AND WATER)
     Dates: start: 20250828
  7. FOLIC ACID [Concomitant]
     Active Substance: FOLIC ACID
     Indication: Blood folate decreased
     Dosage: 1 MG, 1X/DAY
     Route: 048
     Dates: start: 202506
  8. ZETIA [Concomitant]
     Active Substance: EZETIMIBE
     Indication: Blood cholesterol
     Dosage: 10 MG, 1X/DAY
     Route: 048
     Dates: start: 202506
  9. VITAMIN D3 [Concomitant]
     Active Substance: CHOLECALCIFEROL
     Indication: Vitamin D decreased
     Dosage: 50000 IU, WEEKLY
     Route: 048
  10. FUROSEMIDE [Concomitant]
     Active Substance: FUROSEMIDE
     Indication: Swelling
     Dosage: 200 MG, 1X/DAY (AS NEEDED)
     Route: 048
     Dates: start: 202508
  11. POTASSIUM CHLORIDE [Concomitant]
     Active Substance: POTASSIUM CHLORIDE
     Indication: Blood potassium decreased
     Dosage: 10 MEQ, 2X/DAY
  12. GABAPENTIN [Concomitant]
     Active Substance: GABAPENTIN
     Indication: Neuralgia
     Dosage: 300 MG (TAKE ONE CAPSULE BY MOUTH 3 TIMES AS NEEDED)
     Route: 048
     Dates: start: 20250928
  13. METHADONE [Concomitant]
     Active Substance: METHADONE HYDROCHLORIDE
     Indication: Pain
     Dosage: UNK (50 UNITS IN MORNING, 45 UNITS AT NIGHT. MIX WITH WATER IN CUP, TAKE IT)

REACTIONS (2)
  - Drug screen positive [Unknown]
  - Overdose [Unknown]

NARRATIVE: CASE EVENT DATE: 20251028
